FAERS Safety Report 8515972 (Version 6)
Quarter: 2012Q4

REPORT INFORMATION
  Report Type: 
  Country: JP (occurrence: JP)
  Receive Date: 20120417
  Receipt Date: 20121102
  Transmission Date: 20130627
  Serious: Yes (Other)
  Sender: FDA-Public Use
  Company Number: JP-UCBSA-054826

PATIENT
  Age: 64 Year
  Sex: Male
  Weight: 57.7 kg

DRUGS (8)
  1. E KEPPRA [Suspect]
     Indication: EPILEPSY
     Route: 048
     Dates: start: 20110715, end: 20111201
  2. DEPAKENE-R [Suspect]
     Indication: EPILEPSY
     Dosage: DAILY DOSE:400 MG
     Route: 048
     Dates: start: 20101217, end: 20110106
  3. DEPAKENE-R [Suspect]
     Indication: EPILEPSY
     Route: 048
     Dates: start: 20110107, end: 20110220
  4. DEPAKENE-R [Suspect]
     Indication: EPILEPSY
     Route: 048
     Dates: start: 20110221
  5. CLONAZEPAM [Suspect]
     Indication: EPILEPSY
     Dosage: DAILY DOSE: 1-2MG
     Route: 048
     Dates: start: 20070314
  6. RISPERIDONE [Suspect]
     Indication: RESTLESSNESS
     Dosage: DAILY DOSE : 1 MG
     Route: 048
     Dates: start: 20120127, end: 20120405
  7. CARBAMAZEPINE [Concomitant]
     Indication: EPILEPSY
     Dosage: DAILY DOSE: 200MG
     Route: 048
     Dates: start: 20101022, end: 20111005
  8. SENNOSIDE [Concomitant]
     Indication: CONSTIPATION
     Dosage: DAILY DOSE: 12MG
     Route: 048
     Dates: start: 20050330

REACTIONS (1)
  - Platelet count decreased [Not Recovered/Not Resolved]
